FAERS Safety Report 6295729-7 (Version None)
Quarter: 2009Q3

REPORT INFORMATION
  Report Type: 
  Country: None (occurrence: None)
  Receive Date: 20090804
  Receipt Date: 20090728
  Transmission Date: 20100115
  Serious: Yes (Other)
  Sender: FDA-Public Use
  Company Number: US-ASTRAZENECA-2009UW21444

PATIENT
  Age: 55 Year
  Sex: Female

DRUGS (2)
  1. ARIMIDEX [Suspect]
     Route: 048
     Dates: start: 20050101
  2. PROZAC [Concomitant]

REACTIONS (6)
  - CRYING [None]
  - DEPRESSION [None]
  - SELF-INJURIOUS IDEATION [None]
  - SHOPLIFTING [None]
  - SUICIDE ATTEMPT [None]
  - THINKING ABNORMAL [None]
